FAERS Safety Report 4597769-2 (Version None)
Quarter: 2005Q1

REPORT INFORMATION
  Report Type: 
  Country: None (occurrence: None)
  Receive Date: 20050301
  Receipt Date: 20050217
  Transmission Date: 20050727
  Serious: Yes (Hospitalization)
  Sender: FDA-Public Use
  Company Number: 2005UW02944

PATIENT
  Age: 61 Year
  Sex: Male

DRUGS (5)
  1. CRESTOR [Suspect]
     Dosage: 20 MG DAILY PO
     Route: 048
     Dates: start: 20030201
  2. NIACIN [Concomitant]
  3. HYPERTENSION PILLS [Concomitant]
  4. DILANTIN [Concomitant]
  5. PHENOBARBITAL [Concomitant]

REACTIONS (4)
  - BACK PAIN [None]
  - BLOOD CHOLESTEROL INCREASED [None]
  - DRUG INEFFECTIVE [None]
  - HYPOXIA [None]
